FAERS Safety Report 8316755-X (Version None)
Quarter: 2012Q2

REPORT INFORMATION
  Report Type: 
  Country: None (occurrence: None)
  Receive Date: 20120427
  Receipt Date: 20120420
  Transmission Date: 20120825
  Serious: Yes (Hospitalization)
  Sender: FDA-Public Use
  Company Number: US-BAYER-2011-007438

PATIENT
  Age: 18 Year
  Sex: Female
  Weight: 169.84 kg

DRUGS (5)
  1. SINGULAIR [Concomitant]
     Indication: HYPERSENSITIVITY
     Dosage: UNK
     Dates: start: 20060101
  2. MOTRIN [Concomitant]
     Dosage: 800 MG, TID
     Route: 048
     Dates: start: 20070123
  3. HYDROCODONE BITARTRATE AND ACETAMINOPHEN [Concomitant]
     Dosage: 7.5 MG, PRN
     Dates: start: 20070202
  4. ZYRTEC [Concomitant]
     Indication: HYPERSENSITIVITY
     Dosage: UNK
     Dates: start: 20060101
  5. YASMIN [Suspect]
     Dosage: UNK
     Route: 048
     Dates: start: 20060901, end: 20070201

REACTIONS (2)
  - PULMONARY EMBOLISM [None]
  - PAIN [None]
